FAERS Safety Report 5293745-5 (Version None)
Quarter: 2007Q2

REPORT INFORMATION
  Report Type: 
  Country: None (occurrence: None)
  Receive Date: 20070405
  Receipt Date: 20070327
  Transmission Date: 20071010
  Serious: Yes (Death)
  Sender: FDA-Public Use
  Company Number: 2007RR-06607

PATIENT
  Age: 45 Year
  Sex: Female

DRUGS (6)
  1. AMOXICILLIN + CLAVULANATE POTASSIUM [Suspect]
     Indication: BRONCHOPNEUMONIA
  2. LEVOFLOXACIN [Suspect]
     Indication: BRONCHOPNEUMONIA
  3. FUROSEMIDE [Suspect]
     Indication: RENAL IMPAIRMENT
  4. CANREONATE (CANREONATE) [Suspect]
     Indication: RENAL IMPAIRMENT
  5. PANTOPRAZOLE SODIUM [Suspect]
  6. ITRACOMAZOLE (ITRACOMAZOLE [Suspect]
     Indication: CANDIDIASIS

REACTIONS (1)
  - TOXIC EPIDERMAL NECROLYSIS [None]
